FAERS Safety Report 4362659-7 (Version None)
Quarter: 2004Q2

REPORT INFORMATION
  Report Type: 
  Country: None (occurrence: None)
  Receive Date: 20040517
  Receipt Date: 20040504
  Transmission Date: 20050107
  Serious: Yes (Other)
  Sender: FDA-Public Use
  Company Number: 2004212570SA

PATIENT
  Age: 22 Year
  Sex: Female

DRUGS (3)
  1. IDARUBICIN HCL [Suspect]
     Indication: ACUTE MYELOID LEUKAEMIA
     Dosage: 12 MG/M2, CYCLIC, FOR 3 DAYS
  2. CYTOSAR-U [Suspect]
     Indication: ACUTE MYELOID LEUKAEMIA
     Dosage: 100 MG/M2, CYCLIC, FOR 7 DAYS, IV; 2000 MG/M2, CYCLIC, FOR 5 DAYS
  3. FLUDARA [Suspect]
     Indication: ACUTE MYELOID LEUKAEMIA
     Dosage: 30 MG/M2, CYCLIC, FOR 5 DAYS

REACTIONS (12)
  - ABORTION SPONTANEOUS [None]
  - ASPERGILLOMA [None]
  - BIOPSY BONE MARROW ABNORMAL [None]
  - BONE MARROW DEPRESSION [None]
  - CEREBROVASCULAR DISORDER [None]
  - COMPLICATIONS OF MATERNAL EXPOSURE TO THERAPEUTIC DRUGS [None]
  - GENERAL PHYSICAL HEALTH DETERIORATION [None]
  - GRAND MAL CONVULSION [None]
  - LUNG INFILTRATION [None]
  - MATERNAL DRUGS AFFECTING FOETUS [None]
  - ORAL CANDIDIASIS [None]
  - STAPHYLOCOCCAL SEPSIS [None]
